FAERS Safety Report 25428021 (Version 1)
Quarter: 2025Q2

REPORT INFORMATION
  Report Type: Spontaneous
  Country: US (occurrence: None)
  Receive Date: 20250612
  Receipt Date: 20250612
  Transmission Date: 20250716
  Serious: Yes (Hospitalization)
  Sender: FDA-CTU
  Company Number: None

PATIENT
  Age: 74 Year
  Sex: Female
  Weight: 65.77 kg

DRUGS (3)
  1. SPRYCEL [Suspect]
     Active Substance: DASATINIB
  2. METHOTREXATE [Suspect]
     Active Substance: METHOTREXATE
  3. VINCRISTINE SULFATE [Suspect]
     Active Substance: VINCRISTINE SULFATE

REACTIONS (19)
  - Dizziness [None]
  - Asthenia [None]
  - Nausea [None]
  - Vomiting [None]
  - Pyrexia [None]
  - Sinus tachycardia [None]
  - Enterocolitis infectious [None]
  - Gallbladder disorder [None]
  - Acute kidney injury [None]
  - Dehydration [None]
  - Clostridium difficile colitis [None]
  - Immunodeficiency [None]
  - Pleural effusion [None]
  - Oesophagitis [None]
  - Ascites [None]
  - Gallbladder enlargement [None]
  - Pseudomembranous colitis [None]
  - Hypophagia [None]
  - Malnutrition [None]

NARRATIVE: CASE EVENT DATE: 20250513
